FAERS Safety Report 5642381-7 (Version None)
Quarter: 2008Q1

REPORT INFORMATION
  Report Type: 
  Country: None (occurrence: None)
  Receive Date: 20080227
  Receipt Date: 20080227
  Transmission Date: 20080703
  Serious: Yes (Life-Threatening, Disabling)
  Sender: FDA-Public Use
  Company Number: None

PATIENT
  Sex: Male
  Weight: 77.1115 kg

DRUGS (1)
  1. BEXTRA [Suspect]
     Indication: INTERVERTEBRAL DISC DISORDER
     Dosage: 20 MG 2 TIMES DAILY
     Dates: start: 20030702, end: 20030703

REACTIONS (8)
  - BLADDER DISORDER [None]
  - ERYTHEMA [None]
  - HEADACHE [None]
  - HEART RATE INCREASED [None]
  - PAIN OF SKIN [None]
  - PARAESTHESIA [None]
  - SKIN LESION [None]
  - VISION BLURRED [None]
